FAERS Safety Report 22067248 (Version 3)
Quarter: 2023Q2

REPORT INFORMATION
  Report Type: Spontaneous
  Country: US (occurrence: US)
  Receive Date: 20230307
  Receipt Date: 20230630
  Transmission Date: 20230721
  Serious: No
  Sender: FDA-Public Use
  Company Number: US-BRISTOL-MYERS SQUIBB COMPANY-2023-029441

PATIENT
  Age: 37 Year
  Sex: Female

DRUGS (2)
  1. REVLIMID [Suspect]
     Active Substance: LENALIDOMIDE
     Indication: Plasma cell myeloma
     Dates: start: 20170808
  2. REVLIMID [Suspect]
     Active Substance: LENALIDOMIDE
     Dates: start: 20190131

REACTIONS (1)
  - Treatment noncompliance [Unknown]
